FAERS Safety Report 23264487 (Version 1)
Quarter: 2023Q4

REPORT INFORMATION
  Report Type: Spontaneous
  Country: US (occurrence: US)
  Receive Date: 20231205
  Receipt Date: 20231205
  Transmission Date: 20240109
  Serious: No
  Sender: FDA-Public Use
  Company Number: US-BAUSCHBL-2023BNL012393

PATIENT
  Sex: Male

DRUGS (3)
  1. LUMIFY [Suspect]
     Active Substance: BRIMONIDINE TARTRATE
     Indication: Ocular hyperaemia
     Route: 047
     Dates: start: 2023
  2. LUMIFY [Suspect]
     Active Substance: BRIMONIDINE TARTRATE
  3. TETRAHYDROZOLINE HYDROCHLORIDE [Suspect]
     Active Substance: TETRAHYDROZOLINE HYDROCHLORIDE
     Indication: Ocular hyperaemia
     Dosage: USING OR 50 YEARS
     Route: 047

REACTIONS (2)
  - Conjunctivitis [Unknown]
  - Drug hypersensitivity [Unknown]
